FAERS Safety Report 5696355-0 (Version None)
Quarter: 2008Q2

REPORT INFORMATION
  Report Type: 
  Country: None (occurrence: None)
  Receive Date: 20080408
  Receipt Date: 20080326
  Transmission Date: 20081010
  Serious: Yes (Other)
  Sender: FDA-Public Use
  Company Number: US-PFIZER INC-2008027487

PATIENT
  Age: 40 Year
  Sex: Female

DRUGS (1)
  1. LYRICA [Suspect]
     Indication: NEUROPATHY PERIPHERAL
     Route: 048

REACTIONS (4)
  - ANAESTHETIC COMPLICATION [None]
  - DENTAL TREATMENT [None]
  - MUSCLE SPASMS [None]
  - RESTLESS LEGS SYNDROME [None]
